FAERS Safety Report 23490978 (Version 1)
Quarter: 2024Q1

REPORT INFORMATION
  Report Type: Spontaneous
  Country: US (occurrence: None)
  Receive Date: 20240206
  Receipt Date: 20240206
  Transmission Date: 20240410
  Serious: No
  Sender: FDA-Public Use
  Company Number: US-ROCHE-3425238

PATIENT
  Age: 69 Year
  Sex: Female

DRUGS (2)
  1. NUTROPIN AQ [Suspect]
     Active Substance: SOMATROPIN
     Indication: Product used for unknown indication
     Route: 058
     Dates: start: 2013
  2. NUTROPIN AQ [Suspect]
     Active Substance: SOMATROPIN

REACTIONS (5)
  - Nausea [Unknown]
  - Headache [Unknown]
  - Cough [Unknown]
  - Lower respiratory tract congestion [Unknown]
  - Effusion [Unknown]

NARRATIVE: CASE EVENT DATE: 20230915
